FAERS Safety Report 8932491 (Version 1)
Quarter: 2012Q4

REPORT INFORMATION
  Report Type: Spontaneous
  Country: DE (occurrence: None)
  Receive Date: 20121119
  Receipt Date: 20121119
  Transmission Date: 20130627
  Serious: Yes (Other)
  Sender: FDA-Public Use
  Company Number: GER/GER/12/0026625

PATIENT
  Age: 18 Year
  Sex: Female

DRUGS (1)
  1. CITALOPRAM (CITALOPRAM) [Suspect]
     Indication: DEPRESSION
     Route: 048
     Dates: start: 20100828, end: 20110502

REACTIONS (3)
  - Exposure during pregnancy [None]
  - Premature rupture of membranes [None]
  - Premature delivery [None]
